FAERS Safety Report 25633676 (Version 1)
Quarter: 2025Q3

REPORT INFORMATION
  Report Type: Spontaneous
  Country: US (occurrence: None)
  Receive Date: 20250801
  Receipt Date: 20250801
  Transmission Date: 20251021
  Serious: Yes (Hospitalization)
  Sender: FDA-CTU
  Company Number: None

PATIENT
  Age: 78 Year
  Sex: Female

DRUGS (1)
  1. OZEMPIC [Suspect]
     Active Substance: SEMAGLUTIDE
     Route: 058
     Dates: start: 20241009, end: 20250728

REACTIONS (9)
  - Adverse drug reaction [None]
  - Intestinal perforation [None]
  - Diverticulitis [None]
  - Sepsis [None]
  - Leukocytosis [None]
  - Tachycardia [None]
  - Hypoxia [None]
  - Acute kidney injury [None]
  - Medication error [None]

NARRATIVE: CASE EVENT DATE: 20250728
